FAERS Safety Report 7920030-2 (Version None)
Quarter: 2011Q4

REPORT INFORMATION
  Report Type: 
  Country: None (occurrence: None)
  Receive Date: 20111117
  Receipt Date: 20111110
  Transmission Date: 20120403
  Serious: Yes (Death, Hospitalization, Other)
  Sender: FDA-Public Use
  Company Number: US-BRISTOL-MYERS SQUIBB COMPANY-16159444

PATIENT
  Age: 82 Year
  Sex: Male
  Weight: 105 kg

DRUGS (3)
  1. TAXOL [Suspect]
     Indication: NON-SMALL CELL LUNG CANCER
     Dosage: LAST DOSE ON 04OCT2011 CONCURRENT TAXOL DOSE:515MG(ONE MISSED TREATMENT),TOTAL GIVEN 1427MG
     Dates: start: 20110705
  2. CARBOPLATIN [Suspect]
     Indication: NON-SMALL CELL LUNG CANCER
     Dosage: LAST DOSE ON 04OCT2011 CONCURRENT CARBOPLATIN TOTAL:1135MG(ONE MISSED TRATEMENT),TOTAL GIVEN 2723MG
     Dates: start: 20110705
  3. ERBITUX [Suspect]
     Indication: NON-SMALL CELL LUNG CANCER
     Dosage: INTERRUPTED ON 11OCT11 3762MG
     Dates: start: 20110705

REACTIONS (8)
  - CARDIO-RESPIRATORY ARREST [None]
  - HEART RATE IRREGULAR [None]
  - RESPIRATORY FAILURE [None]
  - PNEUMONIA [None]
  - VOCAL CORD PARALYSIS [None]
  - SEPSIS [None]
  - ATRIAL FIBRILLATION [None]
  - DYSPNOEA [None]
